FAERS Safety Report 8560142-6 (Version None)
Quarter: 2012Q3

REPORT INFORMATION
  Report Type: 
  Country: None (occurrence: None)
  Receive Date: 20120802
  Receipt Date: 20120724
  Transmission Date: 20120928
  Serious: No
  Sender: FDA-Public Use
  Company Number: JP-SANOFI-AVENTIS-2012SA052673

PATIENT
  Sex: Female

DRUGS (12)
  1. CELECOXIB [Suspect]
     Route: 048
  2. PURSENNID /SCH/ [Concomitant]
  3. LANSOPRAZOLE [Concomitant]
  4. GRANISETRON [Concomitant]
  5. ZOLPIDEM [Suspect]
     Route: 048
  6. NEORAL [Concomitant]
     Route: 048
  7. TALION [Concomitant]
  8. CYCLOPHOSPHAMIDE [Concomitant]
  9. ATORVASTATIN CALCIUM [Suspect]
     Route: 048
  10. PREDNISOLONE [Concomitant]
  11. SULFAMETHOXAZOLE AND TRIMETHOPRIM [Concomitant]
     Route: 048
  12. MAGLAX [Concomitant]
     Route: 048

REACTIONS (2)
  - ASTHENIA [None]
  - MALAISE [None]
